FAERS Safety Report 17499407 (Version 1)
Quarter: 2020Q1

REPORT INFORMATION
  Report Type: Spontaneous
  Country: US (occurrence: US)
  Receive Date: 20200304
  Receipt Date: 20200304
  Transmission Date: 20200409
  Serious: No
  Sender: FDA-Public Use
  Company Number: US-PTC THERAPEUTICS, INC.-US-2019PTC001500

PATIENT
  Age: 12 Year
  Sex: Male
  Weight: 35.69 kg

DRUGS (2)
  1. EMFLAZA [Suspect]
     Active Substance: DEFLAZACORT
     Dosage: 1.3 ML, QD
     Route: 048
  2. EMFLAZA [Suspect]
     Active Substance: DEFLAZACORT
     Indication: MUSCULAR DYSTROPHY
     Dosage: 1.3 ML, QD
     Route: 048

REACTIONS (6)
  - Headache [Unknown]
  - Nausea [Unknown]
  - Vomiting [Unknown]
  - Product dose omission [Unknown]
  - Rash [Unknown]
  - Insomnia [Unknown]

NARRATIVE: CASE EVENT DATE: 201910
